FAERS Safety Report 4592249-2 (Version None)
Quarter: 2005Q1

REPORT INFORMATION
  Report Type: 
  Country: None (occurrence: None)
  Receive Date: 20050228
  Receipt Date: 20041103
  Transmission Date: 20050727
  Serious: No
  Sender: FDA-Public Use
  Company Number: US-BRISTOL-MYERS SQUIBB COMPANY-12755427

PATIENT
  Age: 38 Year
  Sex: Female

DRUGS (3)
  1. ABILIFY [Suspect]
     Indication: BIPOLAR DISORDER
     Route: 048
     Dates: start: 20040909
  2. LAMICTAL [Concomitant]
     Dosage: DOSE TAKEN ALTERNATING DAYS (AD)
     Dates: start: 20030601
  3. SEROQUEL [Concomitant]
     Dates: start: 20030920

REACTIONS (1)
  - ALOPECIA [None]
